FAERS Safety Report 11549506 (Version 1)
Quarter: 2015Q3

REPORT INFORMATION
  Report Type: Spontaneous
  Country: US (occurrence: US)
  Receive Date: 20150924
  Receipt Date: 20150924
  Transmission Date: 20151125
  Serious: No
  Sender: FDA-Public Use
  Company Number: US-INCYTE CORPORATION-2015IN003353

PATIENT
  Sex: Male
  Weight: 68 kg

DRUGS (8)
  1. ADVICOR [Concomitant]
     Active Substance: LOVASTATIN\NIACIN
  2. VERAPAMIL [Concomitant]
     Active Substance: VERAPAMIL HYDROCHLORIDE
  3. HYDROCODONE                        /00060002/ [Concomitant]
     Active Substance: HYDROCODONE
  4. ADVIL [Concomitant]
     Active Substance: IBUPROFEN
  5. TRIAMCINOLONE [Concomitant]
     Active Substance: TRIAMCINOLONE
  6. PREDNISONE. [Concomitant]
     Active Substance: PREDNISONE
  7. JAKAFI [Suspect]
     Active Substance: RUXOLITINIB
     Indication: MYELOFIBROSIS
     Dosage: 15 MG, BID
     Route: 048
     Dates: start: 20140219, end: 201506
  8. FENOFIBRATE. [Concomitant]
     Active Substance: FENOFIBRATE

REACTIONS (1)
  - Haemorrhage [Unknown]
